FAERS Safety Report 7796303-3 (Version None)
Quarter: 2011Q4

REPORT INFORMATION
  Report Type: 
  Country: None (occurrence: None)
  Receive Date: 20111005
  Receipt Date: 20110929
  Transmission Date: 20120403
  Serious: Yes (Hospitalization)
  Sender: FDA-Public Use
  Company Number: US-BRISTOL-MYERS SQUIBB COMPANY-16088791

PATIENT
  Age: 52 Year
  Sex: Female

DRUGS (12)
  1. INDERAL [Concomitant]
  2. SIMVASTATIN [Concomitant]
  3. REMODELLIN [Concomitant]
  4. LETAIRIS [Concomitant]
  5. LEVOXYL [Concomitant]
  6. ZAROXOLYN [Concomitant]
  7. ZOLOFT [Concomitant]
  8. LASIX [Concomitant]
  9. TADALAFIL [Concomitant]
  10. GLUCOPHAGE [Suspect]
     Dosage: ALSO TAKEN ON 21SEP2011
     Dates: start: 20110907
  11. POTASSIUM [Suspect]
  12. DIGOXIN [Concomitant]

REACTIONS (5)
  - BLOOD POTASSIUM INCREASED [None]
  - HEART RATE IRREGULAR [None]
  - MYALGIA [None]
  - DYSPNOEA [None]
  - NAUSEA [None]
